FAERS Safety Report 15834547 (Version 2)
Quarter: 2019Q1

REPORT INFORMATION
  Report Type: Spontaneous
  Country: CH (occurrence: CH)
  Receive Date: 20190116
  Receipt Date: 20190118
  Transmission Date: 20190417
  Serious: Yes (Hospitalization)
  Sender: FDA-Public Use
  Company Number: CH-PFIZER INC-2019016485

PATIENT
  Age: 98 Year
  Sex: Female

DRUGS (30)
  1. CITALOPRAM [Concomitant]
     Active Substance: CITALOPRAM HYDROBROMIDE
     Dosage: UNK, SINGLE
     Dates: start: 20181127, end: 20181127
  2. PASPERTIN [METOCLOPRAMIDE HYDROCHLORIDE] [Concomitant]
     Active Substance: METOCLOPRAMIDE HYDROCHLORIDE
     Dosage: UNK, AS NEEDED (AS NECESSARY)
     Dates: start: 20181128, end: 20181130
  3. BACTRIM [Concomitant]
     Active Substance: SULFAMETHOXAZOLE\TRIMETHOPRIM
     Dosage: UNK
     Dates: start: 20181027, end: 20181031
  4. CYMBALTA [Concomitant]
     Active Substance: DULOXETINE HYDROCHLORIDE
     Dosage: UNK
     Dates: end: 20181107
  5. LACRYCON [GLYCEROL;HYALURONATE SODIUM;POLYACRYLATE SODIUM] [Concomitant]
     Dosage: UNK
     Dates: start: 20181026
  6. DAFALGAN [Suspect]
     Active Substance: ACETAMINOPHEN
     Dosage: 1000 MG, 3X/DAY
     Route: 048
     Dates: end: 20181106
  7. DAFALGAN [Suspect]
     Active Substance: ACETAMINOPHEN
     Dosage: 1000 MG, 3X/DAY
     Route: 048
     Dates: start: 20181123, end: 20181203
  8. PLUS KALIUM [Concomitant]
     Dosage: UNK
     Dates: start: 20181126, end: 20181128
  9. LUVIT D3 [Concomitant]
     Active Substance: CHOLECALCIFEROL
     Dosage: UNK
  10. DAFALGAN [Suspect]
     Active Substance: ACETAMINOPHEN
     Dosage: 1000 MG, 4X/DAY
     Route: 048
     Dates: start: 20181107, end: 20181123
  11. REMERON [Suspect]
     Active Substance: MIRTAZAPINE
     Dosage: 15 MG, 1X/DAY
     Route: 048
     Dates: start: 20181130, end: 20181203
  12. ANXIOLIT [Concomitant]
     Active Substance: OXAZEPAM
     Dosage: UNK
     Dates: start: 20181026, end: 20181107
  13. ANXIOLIT [Concomitant]
     Active Substance: OXAZEPAM
     Dosage: UNK
     Dates: start: 20181204
  14. ZYPREXA [Concomitant]
     Active Substance: OLANZAPINE
     Dosage: UNK
     Dates: start: 20181204
  15. LAXOBERON [Concomitant]
     Active Substance: SODIUM PICOSULFATE
     Dosage: UNK, AS NEEDED (AS NECESSARY)
     Dates: start: 20181027
  16. ELIQUIS [Concomitant]
     Active Substance: APIXABAN
     Dosage: UNK
  17. BUSCOPAN [Concomitant]
     Active Substance: BUTYLSCOPOLAMINE BROMIDE
     Dosage: UNK
     Dates: start: 20181118, end: 20181203
  18. NEXIUM [Concomitant]
     Active Substance: ESOMEPRAZOLE MAGNESIUM
     Dosage: UNK
     Dates: start: 20181127, end: 20181128
  19. TEMESTA [LORAZEPAM] [Suspect]
     Active Substance: LORAZEPAM
     Dosage: 0.5 MG, AS NEEDED (MAX 4X/D AY; AS NECESSARY)
     Route: 048
     Dates: start: 20181117, end: 20181203
  20. REMERON [Suspect]
     Active Substance: MIRTAZAPINE
     Dosage: 15 MG, 1X/DAY
     Route: 048
     Dates: start: 20181107, end: 20181120
  21. REMERON [Suspect]
     Active Substance: MIRTAZAPINE
     Dosage: 30 MG, 1X/DAY
     Route: 048
     Dates: start: 20181121, end: 20181122
  22. MORPHINE HCL [Concomitant]
     Active Substance: MORPHINE HYDROCHLORIDE
     Dosage: UNK, AS NEEDED (AS NECESSARY)
     Dates: start: 20181123
  23. TEMGESIC [Concomitant]
     Active Substance: BUPRENORPHINE HYDROCHLORIDE
     Dosage: UNK, AS NEEDED (AS NECESSARY)
     Dates: start: 20181028, end: 20181112
  24. TEMESTA [LORAZEPAM] [Suspect]
     Active Substance: LORAZEPAM
     Dosage: 1 MG, 2X/DAY
     Route: 048
     Dates: start: 20181123, end: 20181203
  25. BELOC ZOK [Concomitant]
     Active Substance: METOPROLOL SUCCINATE
     Dosage: UNK
  26. HALDOL [Concomitant]
     Active Substance: HALOPERIDOL
     Dosage: UNK, AS NEEDED (AS NECESSARY)
     Dates: start: 20181031, end: 20181203
  27. CETIRIZINE [Concomitant]
     Active Substance: CETIRIZINE HYDROCHLORIDE
     Dosage: UNK, AS NEEDED (AS NECESSARY)
     Dates: start: 20181106, end: 20181123
  28. NITRODERM [Suspect]
     Active Substance: NITROGLYCERIN
     Dosage: 5 MG, DAILY (5MG/24H)
     Route: 062
     Dates: end: 20181122
  29. FURADANTINE [Concomitant]
     Active Substance: NITROFURANTOIN
     Dosage: UNK
     Dates: start: 20181026, end: 20181027
  30. TORASEMIDE [Concomitant]
     Active Substance: TORSEMIDE
     Dosage: UNK, AS NEEDED (AS NECESSARY)

REACTIONS (3)
  - Liver injury [Recovered/Resolved]
  - Cholestasis [Recovered/Resolved]
  - Cell death [Recovered/Resolved]

NARRATIVE: CASE EVENT DATE: 20181123
